FAERS Safety Report 5486729-5 (Version None)
Quarter: 2007Q4

REPORT INFORMATION
  Report Type: 
  Country: None (occurrence: None)
  Receive Date: 20071016
  Receipt Date: 20071004
  Transmission Date: 20080405
  Serious: Yes (Life-Threatening, Hospitalization, Other)
  Sender: FDA-Public Use
  Company Number: JP-JNJFOC-20031200521

PATIENT
  Sex: Female
  Weight: 71 kg

DRUGS (12)
  1. REMICADE [Suspect]
     Dosage: 3MG/KG
     Route: 041
  2. REMICADE [Suspect]
     Indication: RHEUMATOID ARTHRITIS
     Route: 041
  3. RHEUMATREX [Concomitant]
     Route: 048
     Dates: start: 20030601, end: 20031205
  4. GANATON [Concomitant]
     Route: 048
  5. ONE ALPHA [Concomitant]
     Route: 048
  6. RIMATIL [Concomitant]
     Route: 048
  7. LASIX [Concomitant]
     Route: 048
  8. RINDERON [Concomitant]
     Route: 048
     Dates: start: 20030604
  9. LOXONIN [Concomitant]
     Route: 048
  10. CINAL [Concomitant]
     Route: 048
  11. ACINON [Concomitant]
     Route: 048
  12. GLORIAMIN [Concomitant]
     Route: 065

REACTIONS (6)
  - ATELECTASIS [None]
  - BACK PAIN [None]
  - HERPES ZOSTER [None]
  - PNEUMOCYSTIS JIROVECI PNEUMONIA [None]
  - PNEUMONIA KLEBSIELLA [None]
  - SERRATIA INFECTION [None]
